FAERS Safety Report 4693577-2 (Version None)
Quarter: 2005Q2

REPORT INFORMATION
  Report Type: 
  Country: None (occurrence: None)
  Receive Date: 20050615
  Receipt Date: 20050610
  Transmission Date: 20051028
  Serious: Yes (Other)
  Sender: FDA-Public Use
  Company Number: NLWYE737713JUN05

PATIENT

DRUGS (2)
  1. EFFEXOR [Suspect]
     Indication: DEPRESSION
     Dosage: ORAL
     Route: 048
     Dates: end: 20040701
  2. UNSPECIFIED BENZODIAZEPINE (UNSPECIFIED BENZODIAZEPINE) [Concomitant]

REACTIONS (1)
  - OPTIC ATROPHY [None]
